FAERS Safety Report 7161854-1 (Version None)
Quarter: 2010Q4

REPORT INFORMATION
  Report Type: 
  Country: None (occurrence: None)
  Receive Date: 20101215
  Receipt Date: 20100709
  Transmission Date: 20110411
  Serious: Yes (Hospitalization)
  Sender: FDA-Public Use
  Company Number: PH-PFIZER INC-2010086278

PATIENT
  Sex: Female

DRUGS (8)
  1. LYRICA [Suspect]
     Indication: HYPOAESTHESIA
     Dosage: UNK
  2. BENADRYL [Concomitant]
  3. NOREPINEPHRINE [Concomitant]
  4. PREDNISONE [Concomitant]
  5. DEMEROL [Concomitant]
  6. TRAMADOL [Concomitant]
  7. PARACETAMOL [Concomitant]
  8. CYCLOPHOSPHAMIDE [Concomitant]

REACTIONS (2)
  - RASH [None]
  - VASCULITIS [None]
